FAERS Safety Report 9368528 (Version 2)
Quarter: 2013Q3

REPORT INFORMATION
  Report Type: Spontaneous
  Country: US (occurrence: US)
  Receive Date: 20130625
  Receipt Date: 20130703
  Transmission Date: 20140515
  Serious: Yes (Hospitalization, Other)
  Sender: FDA-Public Use
  Company Number: US-UCBSA-089405

PATIENT
  Sex: Male

DRUGS (2)
  1. KEPPRA [Suspect]
     Indication: CONVULSION
     Dosage: 1500 MG QAM AND QPM
  2. TEGRETOL [Concomitant]
     Dosage: DOSE: UNKNOWN

REACTIONS (2)
  - Syncope [Recovered/Resolved]
  - Complex partial seizures [Recovering/Resolving]
